FAERS Safety Report 6099092-6 (Version None)
Quarter: 2009Q1

REPORT INFORMATION
  Report Type: 
  Country: None (occurrence: None)
  Receive Date: 20090302
  Receipt Date: 20090225
  Transmission Date: 20090719
  Serious: No
  Sender: FDA-Public Use
  Company Number: US-B.I. PHARMACEUTICALS,INC./RIDGEFIELD-2009-BP-01310BP

PATIENT
  Sex: Male

DRUGS (3)
  1. COMBIVENT [Suspect]
     Indication: CHRONIC OBSTRUCTIVE PULMONARY DISEASE
     Dosage: 8PUF
     Route: 055
     Dates: start: 20080401
  2. ADVAIR HFA [Concomitant]
     Indication: ASTHMA
     Route: 055
     Dates: start: 20060101
  3. FLOMAX [Concomitant]

REACTIONS (2)
  - DRUG EFFECT DELAYED [None]
  - THERAPEUTIC RESPONSE DECREASED [None]
